FAERS Safety Report 17478797 (Version 2)
Quarter: 2020Q2

REPORT INFORMATION
  Report Type: Spontaneous
  Country: SI (occurrence: SI)
  Receive Date: 20200229
  Receipt Date: 20200626
  Transmission Date: 20200713
  Serious: Yes (Other)
  Sender: FDA-Public Use
  Company Number: NVSC2020SI052828

PATIENT
  Age: 59 Year
  Sex: Male

DRUGS (37)
  1. CAPECITABINE. [Suspect]
     Active Substance: CAPECITABINE
     Indication: METASTASES TO LUNG
  2. CALCIUM FOLINATE [Suspect]
     Active Substance: LEUCOVORIN CALCIUM
     Indication: METASTASES TO LUNG
     Dosage: UNK
     Route: 065
     Dates: start: 20180101
  3. OXALIPLATIN. [Suspect]
     Active Substance: OXALIPLATIN
     Indication: ADENOCARCINOMA OF COLON
     Dosage: 8 CYCLES
     Route: 065
     Dates: start: 20140711
  4. BEVACIZUMAB. [Suspect]
     Active Substance: BEVACIZUMAB
     Indication: METASTASES TO LIVER
     Dosage: UNK
     Route: 042
     Dates: start: 20180101
  5. FOLINIC ACID [Suspect]
     Active Substance: LEUCOVORIN
     Indication: METASTASES TO LUNG
  6. CALCIUM FOLINATE [Suspect]
     Active Substance: LEUCOVORIN CALCIUM
     Indication: ADENOCARCINOMA OF COLON
     Dosage: 16 CYCLES
     Route: 065
     Dates: start: 20150713
  7. CALCIUM FOLINATE [Suspect]
     Active Substance: LEUCOVORIN CALCIUM
     Indication: METASTASES TO LIVER
  8. CAPECITABINE. [Suspect]
     Active Substance: CAPECITABINE
     Indication: ADENOCARCINOMA OF COLON
  9. AFLIBERCEPT [Suspect]
     Active Substance: AFLIBERCEPT
     Indication: ADENOCARCINOMA OF COLON
  10. FLUOROURACIL. [Suspect]
     Active Substance: FLUOROURACIL
     Indication: METASTASES TO LUNG
     Dosage: UNK
     Route: 065
     Dates: start: 20180101
  11. IRINOTECAN [Suspect]
     Active Substance: IRINOTECAN
     Indication: METASTASES TO LIVER
     Dosage: 4 CYCLES ADMINISTERED
     Route: 065
     Dates: start: 20121220
  12. CONCOR [Concomitant]
     Active Substance: BISOPROLOL FUMARATE
     Indication: PRODUCT USED FOR UNKNOWN INDICATION
     Route: 065
  13. PRENESSA [Concomitant]
     Active Substance: PERINDOPRIL
     Indication: PRODUCT USED FOR UNKNOWN INDICATION
     Dosage: UNK
     Route: 065
  14. ASPARIN [Concomitant]
     Active Substance: ASPIRIN DL-LYSINE
     Indication: PRODUCT USED FOR UNKNOWN INDICATION
     Dosage: UNK
     Route: 065
  15. OXALIPLATIN. [Suspect]
     Active Substance: OXALIPLATIN
     Indication: METASTASES TO LIVER
     Dosage: UNK
     Route: 065
     Dates: start: 20180101
  16. BEVACIZUMAB. [Suspect]
     Active Substance: BEVACIZUMAB
     Indication: METASTASES TO LIVER
  17. AFLIBERCEPT [Suspect]
     Active Substance: AFLIBERCEPT
     Indication: METASTASES TO LUNG
  18. FLUOROURACIL. [Suspect]
     Active Substance: FLUOROURACIL
     Indication: METASTASES TO LIVER
     Dosage: 16 CYCLES
     Route: 065
     Dates: start: 20150713
  19. CAPECITABINE. [Suspect]
     Active Substance: CAPECITABINE
     Indication: ADENOCARCINOMA OF COLON
     Dosage: 4 CYCLES ADMINISTERED
     Route: 048
     Dates: start: 20121220
  20. IRINOTECAN [Suspect]
     Active Substance: IRINOTECAN
     Dosage: UNK
     Route: 065
     Dates: start: 20180101
  21. BEVACIZUMAB. [Suspect]
     Active Substance: BEVACIZUMAB
     Indication: ADENOCARCINOMA OF COLON
     Dosage: 8 CYCLES
     Route: 042
     Dates: start: 20140711
  22. FOLINIC ACID [Suspect]
     Active Substance: LEUCOVORIN
     Indication: ADENOCARCINOMA OF COLON
     Dosage: 16 CYCLES
     Route: 065
     Dates: start: 20150713
  23. OXALIPLATIN. [Suspect]
     Active Substance: OXALIPLATIN
     Indication: METASTASES TO LUNG
  24. CAPECITABINE. [Suspect]
     Active Substance: CAPECITABINE
     Indication: METASTASES TO LIVER
     Dosage: 8 CYCLES
     Route: 048
     Dates: start: 20140711
  25. CAPECITABINE. [Suspect]
     Active Substance: CAPECITABINE
     Indication: METASTASES TO LIVER
     Dosage: MAINTENANCE TREATMENT
     Route: 048
     Dates: start: 20150611
  26. IRINOTECAN [Suspect]
     Active Substance: IRINOTECAN
     Indication: METASTASES TO LUNG
     Dosage: 16 CYCLES
     Route: 065
     Dates: start: 20150513
  27. BEVACIZUMAB. [Suspect]
     Active Substance: BEVACIZUMAB
     Indication: ADENOCARCINOMA OF COLON
     Dosage: 4 CYCLES ADMINISTERED
     Route: 042
     Dates: start: 20121220
  28. AFLIBERCEPT [Suspect]
     Active Substance: AFLIBERCEPT
     Indication: ADENOCARCINOMA OF COLON
     Dosage: 16 CYCLES
     Route: 065
     Dates: start: 20150713
  29. AFLIBERCEPT [Suspect]
     Active Substance: AFLIBERCEPT
     Indication: METASTASES TO LUNG
  30. AFLIBERCEPT [Suspect]
     Active Substance: AFLIBERCEPT
     Indication: METASTASES TO LIVER
  31. VASILIP [Concomitant]
     Active Substance: SIMVASTATIN
     Indication: PRODUCT USED FOR UNKNOWN INDICATION
     Dosage: UNK
     Route: 065
  32. CAPECITABINE. [Suspect]
     Active Substance: CAPECITABINE
     Indication: METASTASES TO LIVER
     Dosage: ANOTHER 4 CYCLES ADMINISTERED
     Route: 048
     Dates: start: 20130401
  33. IRINOTECAN [Suspect]
     Active Substance: IRINOTECAN
     Indication: ADENOCARCINOMA OF COLON
     Dosage: ANOTHER 4 CYCLES ADMINISTERED
     Route: 065
     Dates: start: 20130401
  34. BEVACIZUMAB. [Suspect]
     Active Substance: BEVACIZUMAB
     Indication: METASTASES TO LIVER
     Dosage: ANOTHER 4 CYCLES ADMINISTERED
     Route: 042
     Dates: start: 20130401
  35. BEVACIZUMAB. [Suspect]
     Active Substance: BEVACIZUMAB
     Indication: METASTASES TO LUNG
  36. AFLIBERCEPT [Suspect]
     Active Substance: AFLIBERCEPT
     Indication: METASTASES TO LIVER
  37. FOLINIC ACID [Suspect]
     Active Substance: LEUCOVORIN
     Indication: METASTASES TO LIVER
     Dosage: UNK
     Route: 065
     Dates: start: 20180101

REACTIONS (4)
  - Lung neoplasm [Unknown]
  - Proteinuria [Recovered/Resolved]
  - Hypertension [Recovered/Resolved]
  - Metastases to lung [Unknown]

NARRATIVE: CASE EVENT DATE: 20140711
